FAERS Safety Report 6252159-1 (Version None)
Quarter: 2009Q2

REPORT INFORMATION
  Report Type: 
  Country: None (occurrence: None)
  Receive Date: 20090630
  Receipt Date: 20050121
  Transmission Date: 20091009
  Serious: Yes (Hospitalization)
  Sender: FDA-Public Use
  Company Number: US-ROCHE-639636

PATIENT
  Sex: Female

DRUGS (19)
  1. ENFUVIRTIDE [Suspect]
     Indication: HIV INFECTION
     Route: 065
     Dates: start: 20030829, end: 20041206
  2. ENFUVIRTIDE [Suspect]
     Route: 065
     Dates: start: 20060504, end: 20080814
  3. EPIVIR [Concomitant]
     Dosage: FREQ: QD
     Dates: start: 20030519, end: 20041029
  4. VIREAD [Concomitant]
     Dosage: FREQ: QD
     Dates: start: 20030519, end: 20040102
  5. ZERIT [Concomitant]
     Dates: start: 20030519, end: 20040102
  6. LEXIVA [Concomitant]
     Dosage: FREQ: QD
     Dates: end: 20040121
  7. LEXIVA [Concomitant]
     Dosage: FREQ: QD
     Dates: start: 20040202
  8. NORVIR [Concomitant]
     Dosage: FREQ: QD
     Dates: start: 20040202, end: 20040730
  9. NORVIR [Concomitant]
     Dates: start: 20040730
  10. NORVIR [Concomitant]
     Dates: start: 20060504, end: 20080331
  11. REYATAZ [Concomitant]
     Dosage: FREQ: QD
     Dates: start: 20040202, end: 20040730
  12. INVIRASE [Concomitant]
     Dates: end: 20040121
  13. INVIRASE [Concomitant]
     Dates: start: 20040730
  14. VIREAD [Concomitant]
     Dosage: FREQ: QD
     Dates: start: 20040730, end: 20041029
  15. VIREAD [Concomitant]
     Dates: start: 20060504, end: 20070928
  16. TRUVADA [Concomitant]
     Dosage: FREQ: QD
     Dates: start: 20041029, end: 20041108
  17. TRUVADA [Concomitant]
     Dosage: FREQ: QD
     Dates: start: 20070928, end: 20080414
  18. APTIVUS [Concomitant]
     Dates: start: 20060504, end: 20080331
  19. ISENTRESS [Concomitant]
     Dates: start: 20080331, end: 20080814

REACTIONS (2)
  - CARDIAC FAILURE CONGESTIVE [None]
  - CORONARY ARTERY DISEASE [None]
